FAERS Safety Report 18291850 (Version 2)
Quarter: 2021Q3

REPORT INFORMATION
  Report Type: Report from Study
  Country: KR (occurrence: KR)
  Receive Date: 20200921
  Receipt Date: 20210917
  Transmission Date: 20211014
  Serious: Yes (Hospitalization)
  Sender: FDA-Public Use
  Company Number: KR-JNJFOC-20190729311

PATIENT
  Age: 43 Year
  Sex: Female
  Weight: 59 kg

DRUGS (11)
  1. MESALAZINE [Concomitant]
     Active Substance: MESALAMINE
     Indication: CROHN^S DISEASE
     Route: 048
     Dates: start: 20170929, end: 20200226
  2. MESALAZINE [Concomitant]
     Active Substance: MESALAMINE
     Route: 048
     Dates: start: 20170919
  3. ESOMEZOL [Concomitant]
     Indication: DYSPEPSIA
     Route: 048
     Dates: start: 20161118
  4. FOLIC ACID. [Concomitant]
     Active Substance: FOLIC ACID
     Indication: ANAEMIA PROPHYLAXIS
     Route: 048
     Dates: start: 20101225
  5. METHOTREXATE. [Concomitant]
     Active Substance: METHOTREXATE
     Indication: CROHN^S DISEASE
     Route: 048
     Dates: start: 20170919
  6. REBAMIPIDE [Concomitant]
     Active Substance: REBAMIPIDE
     Route: 048
     Dates: start: 20180531
  7. PLACEBO [Suspect]
     Active Substance: UNSPECIFIED INGREDIENT
     Indication: CROHN^S DISEASE
     Route: 065
     Dates: start: 20190103
  8. REBAMIPIDE [Concomitant]
     Active Substance: REBAMIPIDE
     Indication: DYSPEPSIA
     Route: 048
     Dates: start: 20100811
  9. DICAMAX D PLUS [Concomitant]
     Indication: OSTEOPOROSIS PROPHYLAXIS
     Route: 048
     Dates: start: 20171117
  10. ALBIS D [Concomitant]
     Indication: DYSPEPSIA
     Route: 048
     Dates: start: 20180531
  11. PLACEBO [Suspect]
     Active Substance: UNSPECIFIED INGREDIENT
     Indication: CROHN^S DISEASE
     Dates: start: 20190103

REACTIONS (1)
  - Enterocolitis infectious [Recovered/Resolved]

NARRATIVE: CASE EVENT DATE: 20190716
